FAERS Safety Report 22540560 (Version 1)
Quarter: 2023Q2

REPORT INFORMATION
  Report Type: Spontaneous
  Country: US (occurrence: US)
  Receive Date: 20230609
  Receipt Date: 20230609
  Transmission Date: 20230722
  Serious: No
  Sender: FDA-Public Use
  Company Number: US-TARO PHARMACEUTICALS USA INC.-2022TAR01221

PATIENT

DRUGS (1)
  1. IMIQUIMOD [Suspect]
     Active Substance: IMIQUIMOD
     Indication: Neoplasm malignant
     Dosage: UNK, OD, EVERY EVENING AND WASH IT OFF NEXT MORNING, TOPICALLY ON FACE
     Route: 061
     Dates: start: 20220921

REACTIONS (3)
  - Eye swelling [Not Recovered/Not Resolved]
  - Skin lesion [Not Recovered/Not Resolved]
  - Scab [Not Recovered/Not Resolved]
